FAERS Safety Report 9475194 (Version 1)
Quarter: 2013Q3

REPORT INFORMATION
  Report Type: Spontaneous
  Country: GB (occurrence: GB)
  Receive Date: 20130825
  Receipt Date: 20130825
  Transmission Date: 20140515
  Serious: Yes (Hospitalization)
  Sender: FDA-Public Use
  Company Number: PHHY2013GB089799

PATIENT
  Age: 95 Year
  Sex: Female

DRUGS (7)
  1. PERINDOPRIL [Suspect]
     Dosage: 2 MG, QD (TAKEN IN THE MORNING)
     Route: 048
     Dates: start: 20110826
  2. TRIMETHOPRIM [Interacting]
     Indication: URINARY TRACT INFECTION
     Dosage: 200 MG (THREE DAY COURSE)
     Route: 048
     Dates: start: 20130726, end: 20130729
  3. NITRAZEPAM [Concomitant]
     Dosage: 5 MG, QD TAKEN AT NIGHT.
     Route: 048
     Dates: start: 20110826
  4. PARACETAMOL [Concomitant]
     Dosage: 1000 MG, TID, TWO TABLETS THREE TIMES DAILY
     Route: 048
  5. LEVOTHYROXINE SODIUM [Concomitant]
     Dosage: 100 UG, QD, ONE IN THE MORNING.
     Route: 048
     Dates: start: 20110826
  6. SENNA [Concomitant]
     Dosage: 15 MG, QD, TWO TABLETS AT NIGHT
     Route: 048
  7. ADALAT [Concomitant]
     Dosage: UNKNOWN DOSE WHEN REQUIRED
     Route: 048

REACTIONS (2)
  - Hyponatraemia [Recovering/Resolving]
  - Drug interaction [Unknown]
